FAERS Safety Report 6703464-3 (Version None)
Quarter: 2010Q2

REPORT INFORMATION
  Report Type: 
  Country: None (occurrence: None)
  Receive Date: 20100428
  Receipt Date: 20100422
  Transmission Date: 20101027
  Serious: Yes (Other)
  Sender: FDA-Public Use
  Company Number: 2010SP023449

PATIENT
  Age: 7 Year
  Sex: Male

DRUGS (3)
  1. DESLORATADINE [Suspect]
     Indication: SEASONAL ALLERGY
     Dosage: 5 ML; QPM; PO
     Route: 048
     Dates: start: 20100410, end: 20100419
  2. DESLORATADINE [Suspect]
     Indication: SEASONAL ALLERGY
     Dosage: 5 ML; QPM; PO
     Route: 048
     Dates: start: 20100421
  3. CLAMOXYL [Concomitant]

REACTIONS (4)
  - CRYING [None]
  - HEADACHE [None]
  - MYOSITIS [None]
  - PYREXIA [None]
